FAERS Safety Report 15881381 (Version 1)
Quarter: 2019Q1

REPORT INFORMATION
  Report Type: Spontaneous
  Country: DE (occurrence: DE)
  Receive Date: 20190128
  Receipt Date: 20190128
  Transmission Date: 20190417
  Serious: Yes (Other)
  Sender: FDA-Public Use
  Company Number: PHHY2018DE018819

PATIENT
  Sex: Male

DRUGS (10)
  1. MILNACIPRAN [Suspect]
     Active Substance: MILNACIPRAN
     Indication: OBSESSIVE-COMPULSIVE DISORDER
     Dosage: 25 MG, QD
     Route: 065
     Dates: start: 20180418, end: 201806
  2. MILNACIPRAN [Suspect]
     Active Substance: MILNACIPRAN
     Dosage: 150 MG, QD
     Route: 065
  3. CLOMIPRAMINE [Suspect]
     Active Substance: CLOMIPRAMINE
     Indication: OBSESSIVE-COMPULSIVE DISORDER
     Dosage: 300 MG, QD
     Route: 048
     Dates: start: 1995, end: 2015
  4. ANAFRANIL [Concomitant]
     Active Substance: CLOMIPRAMINE HYDROCHLORIDE
     Indication: PRODUCT USED FOR UNKNOWN INDICATION
     Dosage: UNK
     Route: 065
  5. OMEP [Concomitant]
     Active Substance: OMEPRAZOLE
     Indication: HIATUS HERNIA
     Dosage: UNK
     Route: 065
  6. VENLAFAXINE [Suspect]
     Active Substance: VENLAFAXINE HYDROCHLORIDE
     Indication: MAJOR DEPRESSION
     Dosage: 225 MG, QD
     Route: 048
  7. VENLAFAXINE [Suspect]
     Active Substance: VENLAFAXINE HYDROCHLORIDE
     Dosage: 75 MG, QD
     Route: 048
  8. MILNACIPRAN [Suspect]
     Active Substance: MILNACIPRAN
     Dosage: 100 MG, QD
     Route: 065
     Dates: start: 201806
  9. VENLAFAXINE [Suspect]
     Active Substance: VENLAFAXINE HYDROCHLORIDE
     Dosage: 150 MG, QD
     Route: 048
  10. VENLAFAXINE [Suspect]
     Active Substance: VENLAFAXINE HYDROCHLORIDE
     Indication: OBSESSIVE-COMPULSIVE DISORDER
     Dosage: 300 MG, QD
     Route: 048
     Dates: start: 201602

REACTIONS (25)
  - Product use issue [Unknown]
  - Disturbance in attention [Unknown]
  - Urinary tract disorder [Not Recovered/Not Resolved]
  - Influenza like illness [Recovered/Resolved]
  - Constipation [Unknown]
  - Feeling hot [Not Recovered/Not Resolved]
  - Off label use [Unknown]
  - Listless [Recovering/Resolving]
  - Sleep disorder [Recovering/Resolving]
  - Disturbance in attention [Recovering/Resolving]
  - Hyperhidrosis [Unknown]
  - Food intolerance [Unknown]
  - Libido decreased [Unknown]
  - Language disorder [Recovered/Resolved]
  - Affective disorder [Unknown]
  - Drug effect incomplete [Not Recovered/Not Resolved]
  - Promiscuity [Unknown]
  - Pain [Unknown]
  - Psychotic disorder [Unknown]
  - Condition aggravated [Not Recovered/Not Resolved]
  - Libido decreased [Recovering/Resolving]
  - Product use in unapproved indication [Unknown]
  - Sleep disorder [Unknown]
  - Micturition frequency decreased [Recovering/Resolving]
  - Aphasia [Recovered/Resolved]
